FAERS Safety Report 4347390-6 (Version None)
Quarter: 2004Q2

REPORT INFORMATION
  Report Type: 
  Country: None (occurrence: None)
  Receive Date: 20040426
  Receipt Date: 20040426
  Transmission Date: 20050107
  Serious: Yes (Other)
  Sender: FDA-Public Use
  Company Number: None

PATIENT
  Age: 72 Year
  Sex: Male
  Weight: 67.586 kg

DRUGS (3)
  1. ENOXAPARIN SODIUM [Suspect]
     Indication: CEREBROVASCULAR ACCIDENT
     Dosage: 68 QD SQ
     Route: 058
     Dates: start: 20040422, end: 20040425
  2. ENOXAPARIN SODIUM [Suspect]
     Indication: DISEASE RECURRENCE
     Dosage: 68 QD SQ
     Route: 058
     Dates: start: 20040422, end: 20040425
  3. ALPHAGAN [Suspect]
     Indication: GLAUCOMA
     Dosage: OU BID OPHTHALMIC
     Route: 047
     Dates: start: 20040301, end: 20040424

REACTIONS (4)
  - FACIAL PAIN [None]
  - FLANK PAIN [None]
  - GLAUCOMA SURGERY [None]
  - SKIN BURNING SENSATION [None]
